FAERS Safety Report 24010373 (Version 1)
Quarter: 2024Q2

REPORT INFORMATION
  Report Type: Spontaneous
  Country: US (occurrence: US)
  Receive Date: 20240625
  Receipt Date: 20240625
  Transmission Date: 20240715
  Serious: Yes (Death)
  Sender: FDA-Public Use
  Company Number: US-SANOFI-02102992

PATIENT
  Age: 74 Year
  Sex: Male

DRUGS (2)
  1. CEREZYME [Suspect]
     Active Substance: IMIGLUCERASE
     Indication: Gaucher^s disease
     Dosage: 9 DF, QM
     Dates: start: 199901
  2. CEREZYME [Suspect]
     Active Substance: IMIGLUCERASE
     Dosage: 4800 MG; A TOTAL OF 12 VIALS QM

REACTIONS (1)
  - Cardiac procedure complication [Fatal]

NARRATIVE: CASE EVENT DATE: 20240101
